FAERS Safety Report 4596977-4 (Version None)
Quarter: 2005Q1

REPORT INFORMATION
  Report Type: 
  Country: None (occurrence: None)
  Receive Date: 20050228
  Receipt Date: 20050214
  Transmission Date: 20050727
  Serious: Yes (Other)
  Sender: FDA-Public Use
  Company Number: 2005032375

PATIENT
  Sex: Male

DRUGS (1)
  1. CELEBREX [Suspect]
     Indication: ARTHRITIS

REACTIONS (3)
  - DRUG INEFFECTIVE [None]
  - SHOULDER OPERATION [None]
  - SOMNOLENCE [None]
